FAERS Safety Report 14558956 (Version 2)
Quarter: 2019Q4

REPORT INFORMATION
  Report Type: Spontaneous
  Country: IE (occurrence: IE)
  Receive Date: 20180221
  Receipt Date: 20191220
  Transmission Date: 20200122
  Serious: Yes (Hospitalization, Other)
  Sender: FDA-Public Use
  Company Number: IE-EMD SERONO-E2B_90022215

PATIENT
  Age: 30 Year
  Sex: Female

DRUGS (9)
  1. CRINONE [Suspect]
     Active Substance: PROGESTERONE
     Dosage: ONCE AT NIGHT
     Dates: end: 20171026
  2. CETROTIDE [Suspect]
     Active Substance: CETRORELIX ACETATE
     Indication: PRODUCT USED FOR UNKNOWN INDICATION
     Route: 058
     Dates: start: 20171001, end: 20171007
  3. GONAL-F [Suspect]
     Active Substance: FOLLITROPIN
     Indication: BLOOD FOLLICLE STIMULATING HORMONE
     Route: 058
     Dates: start: 20170928, end: 20171006
  4. CRINONE [Suspect]
     Active Substance: PROGESTERONE
     Indication: PRODUCT USED FOR UNKNOWN INDICATION
     Dosage: START DATE AS 26 OCT 2017, PRESCRIBED FOR 12 WEEKS
  5. AUGMENTIN [Suspect]
     Active Substance: AMOXICILLIN\CLAVULANATE POTASSIUM
     Indication: PRODUCT USED FOR UNKNOWN INDICATION
     Route: 048
  6. ELTROXIN [Concomitant]
     Active Substance: LEVOTHYROXINE
     Indication: THYROID DISORDER
  7. BECOTIDE EVOHALER [Concomitant]
     Indication: ASTHMA
     Dosage: PRN
  8. VENTOLIN [Concomitant]
     Active Substance: ALBUTEROL SULFATE
     Indication: ASTHMA
     Dosage: PRN
  9. PREGNYL [Suspect]
     Active Substance: CHORIOGONADOTROPIN ALFA
     Indication: IN VITRO FERTILISATION
     Route: 058
     Dates: start: 20171007

REACTIONS (5)
  - Dyspnoea [Recovered/Resolved]
  - Abdominal pain [Recovered/Resolved]
  - Pulmonary embolism [Recovered/Resolved]
  - Ovarian hyperstimulation syndrome [Recovered/Resolved]
  - Ovarian cyst [Recovered/Resolved]

NARRATIVE: CASE EVENT DATE: 201710
